FAERS Safety Report 18037738 (Version 1)
Quarter: 2020Q3

REPORT INFORMATION
  Report Type: Spontaneous
  Country: PT (occurrence: PT)
  Receive Date: 20200717
  Receipt Date: 20200717
  Transmission Date: 20201103
  Serious: Yes (Other)
  Sender: FDA-Public Use
  Company Number: PT-LEO PHARMA-241098

PATIENT
  Age: 65 Year
  Sex: Female

DRUGS (1)
  1. PICATO [Suspect]
     Active Substance: INGENOL MEBUTATE
     Indication: ACTINIC KERATOSIS
     Dates: start: 201601, end: 201601

REACTIONS (3)
  - Keratoacanthoma [Recovered/Resolved]
  - Squamous cell carcinoma [Recovered/Resolved]
  - Application site inflammation [Recovered/Resolved]
